FAERS Safety Report 15042602 (Version 1)
Quarter: 2018Q2

REPORT INFORMATION
  Report Type: Spontaneous
  Country: US (occurrence: US)
  Receive Date: 20180621
  Receipt Date: 20180621
  Transmission Date: 20180711
  Serious: No
  Sender: FDA-Public Use
  Company Number: US-PFIZER INC-2018251618

PATIENT

DRUGS (4)
  1. SANDIMMUNE [Concomitant]
     Active Substance: CYCLOSPORINE
     Dosage: UNK
  2. DETROL LA [Suspect]
     Active Substance: TOLTERODINE TARTRATE
     Indication: ANGLE CLOSURE GLAUCOMA
     Dosage: UNK
  3. VELBAN [Concomitant]
     Active Substance: VINBLASTINE SULFATE
     Dosage: UNK
  4. DETROL LA [Suspect]
     Active Substance: TOLTERODINE TARTRATE
     Indication: MICTURITION URGENCY

REACTIONS (2)
  - Dry mouth [Unknown]
  - Abdominal pain upper [Unknown]
